FAERS Safety Report 7015329-0 (Version None)
Quarter: 2010Q3

REPORT INFORMATION
  Report Type: 
  Country: None (occurrence: None)
  Receive Date: 20100924
  Receipt Date: 20100924
  Transmission Date: 20110219
  Serious: Yes (Hospitalization)
  Sender: FDA-Public Use
  Company Number: None

PATIENT
  Age: 50 Year
  Sex: Female
  Weight: 73.0291 kg

DRUGS (7)
  1. GEODON [Suspect]
     Indication: BIPOLAR I DISORDER
     Dosage: 160MG QDPO
     Route: 048
     Dates: start: 20100715, end: 20100802
  2. GEODON [Suspect]
     Indication: PANIC DISORDER
     Dosage: 160MG QDPO
     Route: 048
     Dates: start: 20100715, end: 20100802
  3. GEODON [Suspect]
  4. GEODON [Suspect]
     Dates: start: 20100715, end: 20100802
  5. LISINOPRIL [Concomitant]
  6. HYDROCHLOROTHIAZIDE [Concomitant]
  7. FELODIPINE [Concomitant]

REACTIONS (1)
  - SUICIDAL BEHAVIOUR [None]
